FAERS Safety Report 8342029-7 (Version None)
Quarter: 2012Q2

REPORT INFORMATION
  Report Type: 
  Country: None (occurrence: None)
  Receive Date: 20120507
  Receipt Date: 20120504
  Transmission Date: 20120825
  Serious: Yes (Other)
  Sender: FDA-Public Use
  Company Number: US-PFIZER INC-2012110281

PATIENT
  Sex: Male
  Weight: 122 kg

DRUGS (6)
  1. LYRICA [Suspect]
     Indication: COMPLEX REGIONAL PAIN SYNDROME
     Dosage: 50 MG, DAILY
     Route: 048
  2. SOMA [Concomitant]
     Indication: MUSCLE SPASMS
     Dosage: 350 MG, 4X/DAY
     Route: 048
  3. LYRICA [Suspect]
     Indication: OEDEMA PERIPHERAL
     Dosage: 75 MG, DAILY
     Route: 048
  4. LYRICA [Suspect]
     Indication: SWELLING
     Dosage: 200 MG, DAILY
     Route: 048
  5. LYRICA [Suspect]
     Indication: MOVEMENT DISORDER
  6. NORCO [Concomitant]
     Indication: PAIN
     Dosage: 10/325 MG, EVERY FOUR HOURS AS NEEDED
     Route: 048

REACTIONS (2)
  - DYSSTASIA [None]
  - MALAISE [None]
